FAERS Safety Report 13193743 (Version 1)
Quarter: 2017Q1

REPORT INFORMATION
  Report Type: Spontaneous
  Country: FR (occurrence: FR)
  Receive Date: 20170207
  Receipt Date: 20170207
  Transmission Date: 20170428
  Serious: Yes (Hospitalization)
  Sender: FDA-Public Use
  Company Number: FR-ALSI-201700038

PATIENT
  Age: 12 Month
  Sex: Male
  Weight: 11.4 kg

DRUGS (9)
  1. PARACETAMOL [Concomitant]
     Active Substance: ACETAMINOPHEN
     Dates: start: 20160411, end: 20160411
  2. NALBUPHINE HYDROCHLORIDE. [Concomitant]
     Active Substance: NALBUPHINE HYDROCHLORIDE
     Dates: start: 20160411, end: 20160411
  3. SEVOFLURANE. [Suspect]
     Active Substance: SEVOFLURANE
     Dates: start: 20160411, end: 20160411
  4. SODIUM VALPROATE [Concomitant]
     Active Substance: VALPROATE SODIUM
  5. ROPIVACAINE HCL [Concomitant]
     Active Substance: ROPIVACAINE HYDROCHLORIDE
     Dates: start: 20160411, end: 20160411
  6. ONDANSETRON [Concomitant]
     Active Substance: ONDANSETRON
     Dates: start: 20160411, end: 20160411
  7. KEPPRA [Concomitant]
     Active Substance: LEVETIRACETAM
  8. NITROUS OXIDE. [Suspect]
     Active Substance: NITROUS OXIDE
     Indication: ANAESTHESIA PROCEDURE
     Dates: start: 20160411, end: 20160411
  9. SALBUTAMOL [Concomitant]
     Active Substance: ALBUTEROL
     Dates: start: 20160411, end: 20160411

REACTIONS (1)
  - Hyperthermia malignant [None]
